FAERS Safety Report 14693401 (Version 2)
Quarter: 2019Q1

REPORT INFORMATION
  Report Type: Spontaneous
  Country: CA (occurrence: CA)
  Receive Date: 20180329
  Receipt Date: 20190227
  Transmission Date: 20190417
  Serious: Yes (Death, Other)
  Sender: FDA-Public Use
  Company Number: CA-PFIZER INC-2018129085

PATIENT
  Age: 24 Year
  Sex: Male

DRUGS (3)
  1. SODIUM CHLORIDE. [Suspect]
     Active Substance: SODIUM CHLORIDE
     Dosage: 100 ML, UNK
     Route: 042
  2. CEFTRIAXONE SODIUM. [Suspect]
     Active Substance: CEFTRIAXONE SODIUM
     Dosage: UNK
     Route: 042
  3. PANTENOL (DEXPANTHENOL) [Suspect]
     Active Substance: DEXPANTHENOL
     Dosage: UNK
     Route: 042

REACTIONS (5)
  - Cardiac arrest [Unknown]
  - Death [Fatal]
  - Acute respiratory failure [Unknown]
  - Dyspnoea [Unknown]
  - Oxygen saturation decreased [Unknown]
